FAERS Safety Report 7744649-7 (Version None)
Quarter: 2011Q3

REPORT INFORMATION
  Report Type: 
  Country: None (occurrence: None)
  Receive Date: 20110912
  Receipt Date: 20110830
  Transmission Date: 20111222
  Serious: Yes (Hospitalization)
  Sender: FDA-Public Use
  Company Number: PHHY2009JP40017

PATIENT
  Sex: Female

DRUGS (5)
  1. NICARDIPINE HCL [Concomitant]
     Indication: HYPERTENSION
     Dosage: 40 MG,
     Route: 048
     Dates: start: 20030624, end: 20071115
  2. LIPITOR [Concomitant]
     Dosage: 10 MG,
     Route: 048
     Dates: start: 20071115, end: 20071210
  3. VALSARTAN [Suspect]
     Indication: HYPERTENSION
     Dosage: 160 MG, QD
     Route: 048
     Dates: start: 20071115, end: 20071210
  4. ASPARA-CA [Concomitant]
     Dosage: 6 DF,
     Route: 048
     Dates: start: 20030702
  5. PRAVASTATIN SODIUM [Concomitant]
     Dosage: 10 MG,
     Route: 048
     Dates: start: 20030624, end: 20071115

REACTIONS (2)
  - DRUG INEFFECTIVE [None]
  - CEREBRAL HAEMORRHAGE [None]
